FAERS Safety Report 11289867 (Version 10)
Quarter: 2016Q4

REPORT INFORMATION
  Report Type: Report from Study
  Country: US (occurrence: US)
  Receive Date: 20150721
  Receipt Date: 20161128
  Transmission Date: 20170206
  Serious: Yes (Hospitalization, Other)
  Sender: FDA-Public Use
  Company Number: US-SA-2015SA105790

PATIENT
  Age: 56 Year
  Sex: Female
  Weight: 74.84 kg

DRUGS (15)
  1. NAPROXEN. [Concomitant]
     Active Substance: NAPROXEN
     Indication: PAIN
     Dosage: FREQUENCY: PRN
     Route: 048
     Dates: start: 20081202
  2. BOTOX [Concomitant]
     Active Substance: ONABOTULINUMTOXINA
     Dosage: DOSE: 100 UNITS; FREQUENCY: 3 MONTHS
     Route: 030
     Dates: start: 20080212
  3. TYLENOL [Concomitant]
     Active Substance: ACETAMINOPHEN
     Indication: HEADACHE
     Route: 048
     Dates: start: 20090601
  4. KLONOPIN [Concomitant]
     Active Substance: CLONAZEPAM
     Route: 048
     Dates: start: 200705
  5. BENEFIBER [Concomitant]
     Active Substance: STARCH, WHEAT
     Indication: CONSTIPATION
     Dosage: 2 TEASPOON
     Route: 048
     Dates: start: 2009
  6. CLONAZEPAM. [Concomitant]
     Active Substance: CLONAZEPAM
  7. AMITIZA [Concomitant]
     Active Substance: LUBIPROSTONE
     Indication: CONSTIPATION
     Route: 048
     Dates: start: 20081202
  8. GABAPENTIN. [Concomitant]
     Active Substance: GABAPENTIN
  9. BACLOFEN. [Concomitant]
     Active Substance: BACLOFEN
  10. ALEMTUZUMAB [Suspect]
     Active Substance: ALEMTUZUMAB
     Indication: MULTIPLE SCLEROSIS
     Dosage: DOSE: 1.2 ML / 10 MG/ML, INTENDED DOSE: 60 MG
     Route: 042
     Dates: start: 20090601, end: 20090605
  11. ALEMTUZUMAB [Suspect]
     Active Substance: ALEMTUZUMAB
     Indication: MULTIPLE SCLEROSIS
     Dosage: DOSE: 1.2 ML / 10 MG/ML; INTENDED DOSE: 36 MG
     Route: 042
     Dates: start: 20100614, end: 20100616
  12. ESCITALOPRAM OXALATE. [Concomitant]
     Active Substance: ESCITALOPRAM OXALATE
  13. TYLENOL [Concomitant]
     Active Substance: ACETAMINOPHEN
     Indication: PAIN
     Route: 048
     Dates: start: 20090601
  14. TYLENOL [Concomitant]
     Active Substance: ACETAMINOPHEN
     Indication: PREMEDICATION
     Route: 048
     Dates: start: 20090601
  15. NAPROXEN. [Concomitant]
     Active Substance: NAPROXEN
     Indication: MULTIPLE SCLEROSIS
     Dosage: FREQUENCY: PRN
     Route: 048
     Dates: start: 20081202

REACTIONS (2)
  - Basal cell carcinoma [Recovered/Resolved]
  - B-cell lymphoma [Recovered/Resolved]

NARRATIVE: CASE EVENT DATE: 20150212
